FAERS Safety Report 11109992 (Version 1)
Quarter: 2015Q2

REPORT INFORMATION
  Report Type: Spontaneous
  Country: US (occurrence: None)
  Receive Date: 20150512
  Receipt Date: 20150512
  Transmission Date: 20150821
  Serious: No
  Sender: FDA-Public Use
  Company Number: None

PATIENT
  Age: 55 Year
  Sex: Female

DRUGS (1)
  1. ENBREL [Suspect]
     Active Substance: ETANERCEPT
     Indication: PSORIASIS
     Dosage: 50MG, Q WK, SQ
     Route: 058
     Dates: start: 20150117, end: 201503

REACTIONS (2)
  - Demyelination [None]
  - Gait disturbance [None]

NARRATIVE: CASE EVENT DATE: 20150202
